FAERS Safety Report 11263728 (Version 2)
Quarter: 2015Q3

REPORT INFORMATION
  Report Type: Spontaneous
  Country: US (occurrence: US)
  Receive Date: 20150713
  Receipt Date: 20150803
  Transmission Date: 20151125
  Serious: Yes (Other)
  Sender: FDA-Public Use
  Company Number: US-MERCK-1507USA003810

PATIENT
  Sex: Male

DRUGS (1)
  1. CUBICIN [Suspect]
     Active Substance: DAPTOMYCIN
     Dosage: UNK
     Dates: start: 20150206, end: 20150401

REACTIONS (1)
  - Surgery [Unknown]

NARRATIVE: CASE EVENT DATE: 2015
